FAERS Safety Report 7934020-7 (Version None)
Quarter: 2011Q4

REPORT INFORMATION
  Report Type: 
  Country: None (occurrence: None)
  Receive Date: 20111122
  Receipt Date: 20111109
  Transmission Date: 20120403
  Serious: Yes (Hospitalization, Other)
  Sender: FDA-Public Use
  Company Number: US-ELI_LILLY_AND_COMPANY-US201111004214

PATIENT
  Age: 67 Year
  Sex: Female

DRUGS (2)
  1. PROZAC [Suspect]
  2. FLUOXETINE HCL [Concomitant]

REACTIONS (4)
  - ADVERSE EVENT [None]
  - MYOCARDIAL INFARCTION [None]
  - SUICIDAL IDEATION [None]
  - VOMITING [None]
